FAERS Safety Report 10678049 (Version 2)
Quarter: 2015Q1

REPORT INFORMATION
  Report Type: Spontaneous
  Country: US (occurrence: None)
  Receive Date: 20141223
  Receipt Date: 20150129
  Transmission Date: 20150720
  Serious: Yes (Disabling, Other)
  Sender: FDA-Public Use
  Company Number: 2014-20973

PATIENT
  Age: 93 Year
  Sex: Male

DRUGS (1)
  1. EYLEA [Suspect]
     Active Substance: AFLIBERCEPT
     Indication: AGE-RELATED MACULAR DEGENERATION
     Route: 031
     Dates: start: 20140519, end: 20141203

REACTIONS (7)
  - Eye pain [None]
  - Vitrectomy [None]
  - Blindness unilateral [None]
  - Intraocular pressure increased [None]
  - Eye infection bacterial [None]
  - Staphylococcal infection [None]
  - Blindness [None]

NARRATIVE: CASE EVENT DATE: 20141203
